FAERS Safety Report 12799163 (Version 1)
Quarter: 2016Q3

REPORT INFORMATION
  Report Type: Report from Study
  Country: US (occurrence: US)
  Receive Date: 20160930
  Receipt Date: 20160930
  Transmission Date: 20161109
  Serious: Yes (Other)
  Sender: FDA-Public Use
  Company Number: US-AMGEN-USASL2016132881

PATIENT

DRUGS (1)
  1. KYPROLIS [Suspect]
     Active Substance: CARFILZOMIB
     Indication: PRODUCT USED FOR UNKNOWN INDICATION
     Dosage: UNK
     Route: 065

REACTIONS (70)
  - Cardiomyopathy [Unknown]
  - Seizure [Unknown]
  - Pancytopenia [Unknown]
  - Cardiac failure congestive [Unknown]
  - Haemorrhoids [Unknown]
  - Urinary tract infection [Unknown]
  - Chronic kidney disease [Unknown]
  - Colon cancer [Unknown]
  - Polyneuropathy [Unknown]
  - Respiratory failure [Unknown]
  - Dysuria [Unknown]
  - Joint effusion [Unknown]
  - Obesity [Unknown]
  - Blood test abnormal [Unknown]
  - Back pain [Unknown]
  - Urinary retention [Unknown]
  - Gastrointestinal haemorrhage [Unknown]
  - Enzyme level abnormal [Unknown]
  - Immune system disorder [Unknown]
  - Somatic symptom disorder [Unknown]
  - Influenza [Unknown]
  - Pain [Unknown]
  - Ankle fracture [Unknown]
  - Epilepsy [Unknown]
  - Infarction [Unknown]
  - Pulmonary embolism [Unknown]
  - Dry mouth [Unknown]
  - Renal disorder [Unknown]
  - Dyspnoea [Unknown]
  - Intervertebral disc displacement [Unknown]
  - Joint injury [Unknown]
  - Rectosigmoid cancer [Unknown]
  - Nephrotic syndrome [Unknown]
  - Nephritic syndrome [Unknown]
  - Hypokalaemia [Unknown]
  - Neutropenia [Unknown]
  - Gastrooesophageal reflux disease [Unknown]
  - Gastrointestinal disorder [Unknown]
  - Nausea [Unknown]
  - Hypogammaglobulinaemia [Unknown]
  - Pneumonia [Unknown]
  - Acute kidney injury [Unknown]
  - Disorientation [Unknown]
  - Generalised anxiety disorder [Unknown]
  - Intervertebral disc disorder [Unknown]
  - Anaemia [Unknown]
  - Hypotension [Unknown]
  - Tibia fracture [Unknown]
  - Fibula fracture [Unknown]
  - Meningioma benign [Unknown]
  - Hypoxia [Unknown]
  - Shock [Unknown]
  - Delusional disorder, unspecified type [Unknown]
  - Oedema [Unknown]
  - Blood glucose abnormal [Unknown]
  - Dyskinesia [Unknown]
  - Ureteral disorder [Unknown]
  - Wheezing [Unknown]
  - Essential hypertension [Unknown]
  - Palliative care [Unknown]
  - Melaena [Unknown]
  - Tumour lysis syndrome [Unknown]
  - Thrombocytopenia [Unknown]
  - Renal failure [Unknown]
  - Pneumonia haemophilus [Unknown]
  - Atrial fibrillation [Unknown]
  - Adverse drug reaction [Unknown]
  - Temporomandibular joint syndrome [Unknown]
  - Viral infection [Unknown]
  - Lower limb fracture [Unknown]

NARRATIVE: CASE EVENT DATE: 20130617
